FAERS Safety Report 4968541-6 (Version None)
Quarter: 2006Q2

REPORT INFORMATION
  Report Type: 
  Country: None (occurrence: None)
  Receive Date: 20060410
  Receipt Date: 20060330
  Transmission Date: 20061013
  Serious: Yes (Death)
  Sender: FDA-Public Use
  Company Number: US-SANOFI-SYNTHELABO-A03200601948

PATIENT
  Sex: Female

DRUGS (2)
  1. PLAVIX [Suspect]
     Indication: CEREBROVASCULAR ACCIDENT
     Dosage: UNK
     Route: 048
  2. COUMADIN [Concomitant]
     Dosage: UNK
     Route: 048

REACTIONS (3)
  - ABDOMINAL PAIN UPPER [None]
  - DEATH [None]
  - PAIN [None]
